FAERS Safety Report 9565816 (Version 1)
Quarter: 2013Q3

REPORT INFORMATION
  Report Type: Report from Study
  Country: US (occurrence: US)
  Receive Date: 20130930
  Receipt Date: 20130930
  Transmission Date: 20140515
  Serious: Yes (Hospitalization, Other)
  Sender: FDA-Public Use
  Company Number: US-GLAXOSMITHKLINE-Z0018316A

PATIENT
  Age: 73 Year
  Sex: Female
  Weight: 68.7 kg

DRUGS (3)
  1. TRAMETINIB [Suspect]
     Indication: MALIGNANT MELANOMA
     Dosage: 2MG PER DAY
     Route: 048
     Dates: start: 20121025, end: 20130108
  2. DABRAFENIB [Suspect]
     Indication: MALIGNANT MELANOMA
     Dosage: 150MG TWICE PER DAY
     Route: 048
     Dates: start: 20121025, end: 20130108
  3. IBUPROFEN [Concomitant]
     Indication: PYREXIA
     Dosage: 400MG AS REQUIRED
     Route: 048
     Dates: start: 20121007

REACTIONS (8)
  - Pyrexia [Recovered/Resolved]
  - Chills [Recovered/Resolved]
  - Nausea [Recovered/Resolved]
  - Vomiting [Recovered/Resolved]
  - Fatigue [Not Recovered/Not Resolved]
  - Tremor [Recovered/Resolved]
  - Dizziness [Not Recovered/Not Resolved]
  - Abdominal pain upper [Recovered/Resolved]
